FAERS Safety Report 11501430 (Version 1)
Quarter: 2015Q3

REPORT INFORMATION
  Report Type: Spontaneous
  Country: US (occurrence: US)
  Receive Date: 20150914
  Receipt Date: 20150914
  Transmission Date: 20151125
  Serious: No
  Sender: FDA-Public Use
  Company Number: US-009507513-1509USA006667

PATIENT
  Age: 29 Year
  Sex: Female

DRUGS (2)
  1. NUVARING [Suspect]
     Active Substance: ETHINYL ESTRADIOL\ETONOGESTREL
     Dosage: 1RING- 3 WEEKS IN, 1 WEEK OUT
     Route: 067
     Dates: start: 201304
  2. NUVARING [Suspect]
     Active Substance: ETHINYL ESTRADIOL\ETONOGESTREL
     Dosage: 1 RING- 3 WEEKS IN, 1 WEEK OUT
     Route: 067
     Dates: start: 201304

REACTIONS (4)
  - Incorrect drug administration duration [Unknown]
  - No adverse event [Unknown]
  - Inappropriate schedule of drug administration [Unknown]
  - Device expulsion [Unknown]

NARRATIVE: CASE EVENT DATE: 201508
